FAERS Safety Report 6793180-4 (Version None)
Quarter: 2010Q2

REPORT INFORMATION
  Report Type: 
  Country: None (occurrence: None)
  Receive Date: 20100624
  Receipt Date: 20090723
  Transmission Date: 20101027
  Serious: Yes (Other)
  Sender: FDA-Public Use
  Company Number: US-MYLANLABS-2009S1012291

PATIENT
  Age: 15 Year
  Sex: Male

DRUGS (6)
  1. CLOZAPINE [Suspect]
     Route: 048
     Dates: start: 20080328, end: 20090707
  2. CLOZAPINE [Suspect]
     Route: 048
     Dates: start: 20080328, end: 20090707
  3. LITHIUM [Concomitant]
  4. SERTRALINE HCL [Concomitant]
  5. DIVALPROEX SODIUM EXTENDED RELEASE [Concomitant]
  6. CONCERTA [Concomitant]

REACTIONS (1)
  - GRANULOCYTOPENIA [None]
